FAERS Safety Report 5153384-3 (Version None)
Quarter: 2006Q4

REPORT INFORMATION
  Report Type: 
  Country: None (occurrence: None)
  Receive Date: 20061117
  Receipt Date: 20060828
  Transmission Date: 20070319
  Serious: Yes (Hospitalization)
  Sender: FDA-Public Use
  Company Number: US-BOEHRINGER INGELHEIM PHARMACEUTICALS, INC.-2006-BP-09985BP

PATIENT
  Age: 72 Year
  Sex: Male

DRUGS (13)
  1. CATAPRES-TTS-1 [Suspect]
     Indication: HYPERTENSION
     Route: 061
     Dates: start: 20060524, end: 20060801
  2. CATAPRES-TTS-1 [Suspect]
     Route: 061
     Dates: start: 20060801, end: 20060810
  3. CATAPRES-TTS-1 [Suspect]
     Route: 061
     Dates: start: 20060810
  4. PLAVIX [Concomitant]
  5. LISINOPRIL [Concomitant]
  6. NORVASC [Concomitant]
  7. ATENOLOL [Concomitant]
  8. ZOCOR [Concomitant]
  9. NEXIUM [Concomitant]
  10. ADVAIR DISKUS 100/50 [Concomitant]
  11. COMBIVENT [Concomitant]
  12. STOOL SOFTENER [Concomitant]
  13. VITAMINS [Concomitant]

REACTIONS (3)
  - CEREBROVASCULAR ACCIDENT [None]
  - HYPERTENSION [None]
  - HYPOTENSION [None]
